FAERS Safety Report 8467010-9 (Version None)
Quarter: 2012Q2

REPORT INFORMATION
  Report Type: 
  Country: None (occurrence: None)
  Receive Date: 20120626
  Receipt Date: 20120615
  Transmission Date: 20120825
  Serious: Yes (Other)
  Sender: FDA-Public Use
  Company Number: JP-AMGEN-JPNSP2012034792

PATIENT
  Age: 51 Year
  Sex: Male
  Weight: 60 kg

DRUGS (8)
  1. ROMIPLOSTIM - KHK [Suspect]
     Indication: IDIOPATHIC THROMBOCYTOPENIC PURPURA
     Dosage: 3 MUG/KG, QWK
     Route: 058
     Dates: start: 20120507, end: 20120514
  2. PREDNISOLONE [Concomitant]
     Indication: IDIOPATHIC THROMBOCYTOPENIC PURPURA
     Dosage: UNK
     Route: 048
     Dates: start: 20120423
  3. LIPITOR [Concomitant]
     Indication: HYPERLIPIDAEMIA
     Route: 048
     Dates: start: 20120423
  4. CINAL [Concomitant]
     Dosage: DOSAGE DURING A DAY: 1200MG
     Route: 048
     Dates: start: 20120423
  5. NORVASC [Concomitant]
     Indication: HYPERTENSION
     Route: 048
     Dates: start: 20120423
  6. FAMOTIDINE [Concomitant]
     Dosage: DOSAGE DURING A DAY: 40MG
     Route: 048
     Dates: start: 20120423
  7. COTRIM [Concomitant]
     Dosage: DOSAGE DURING A DAY: 80/400MG
     Route: 048
     Dates: start: 20120423
  8. ADONA [Concomitant]
     Dosage: DOSAGE DURING A DAY: 90MG
     Route: 048
     Dates: start: 20120423

REACTIONS (4)
  - NEUTROPHIL COUNT DECREASED [None]
  - ERYTHROBLAST COUNT INCREASED [None]
  - MYELOFIBROSIS [None]
  - WHITE BLOOD CELL COUNT DECREASED [None]
